FAERS Safety Report 8837002 (Version 2)
Quarter: 2012Q4

REPORT INFORMATION
  Report Type: 
  Country: IE (occurrence: IE)
  Receive Date: 20121012
  Receipt Date: 20121210
  Transmission Date: 20130627
  Serious: Yes (Other)
  Sender: FDA-Public Use
  Company Number: IE-COVIDIEN/TYCO HEALTHCARE/MALLINCKRODT-T201203606

PATIENT
  Age: 82 Year
  Sex: Male

DRUGS (2)
  1. OPTIRAY 300 [Suspect]
     Indication: COMPUTERISED TOMOGRAM
     Dosage: 90 ml, single, 4 ml per sec
     Route: 042
     Dates: start: 20121008, end: 20121008
  2. GASTROGRAFIN [Concomitant]
     Indication: COMPUTERISED TOMOGRAM
     Dosage: UNK, single
     Route: 048
     Dates: start: 20121008, end: 20121008

REACTIONS (1)
  - Anaphylactic reaction [Recovered/Resolved]
